FAERS Safety Report 15472407 (Version 1)
Quarter: 2018Q4

REPORT INFORMATION
  Report Type: Spontaneous
  Country: IN (occurrence: IN)
  Receive Date: 20181008
  Receipt Date: 20181008
  Transmission Date: 20190205
  Serious: Yes (Hospitalization, Other)
  Sender: FDA-Public Use
  Company Number: IN-ZYDUS-028560

PATIENT
  Age: 36 Year
  Sex: Female

DRUGS (3)
  1. TOPIRAMATE. [Suspect]
     Active Substance: TOPIRAMATE
     Indication: MIGRAINE
     Route: 065
  2. TOPIRAMATE. [Suspect]
     Active Substance: TOPIRAMATE
     Indication: MIGRAINE
     Route: 065
  3. LEVOTHYROXINE. [Concomitant]
     Active Substance: LEVOTHYROXINE
     Indication: HYPOTHYROIDISM
     Route: 065

REACTIONS (14)
  - Choroidal effusion [Recovered/Resolved]
  - Eye pain [Recovered/Resolved]
  - Uveitis [Recovered/Resolved]
  - Angle closure glaucoma [Recovered/Resolved]
  - Visual impairment [Recovered/Resolved]
  - Corneal pigmentation [Recovered/Resolved]
  - Vitritis [Recovered/Resolved]
  - Cataract [Recovered/Resolved]
  - Acute myopia [Recovered/Resolved]
  - Photophobia [Recovered/Resolved]
  - Iris adhesions [Recovered/Resolved]
  - Ocular hyperaemia [Recovered/Resolved]
  - Corneal oedema [Recovered/Resolved]
  - Conjunctival haemorrhage [Recovered/Resolved]
